FAERS Safety Report 7653626-6 (Version None)
Quarter: 2011Q3

REPORT INFORMATION
  Report Type: 
  Country: None (occurrence: None)
  Receive Date: 20110803
  Receipt Date: 20110803
  Transmission Date: 20111222
  Serious: Yes (Death, Life-Threatening, Hospitalization, Disabling, Congenital Anomaly, Other)
  Sender: FDA-Public Use
  Company Number: None

PATIENT
  Age: 53 Year
  Sex: Female
  Weight: 83.007 kg

DRUGS (1)
  1. GREENSMOKE [Suspect]
     Indication: SMOKING CESSATION THERAPY
     Dosage: UNKNOWN - NOT STATED
     Route: 050
     Dates: start: 20110630, end: 20110801

REACTIONS (2)
  - SPUTUM DISCOLOURED [None]
  - COUGH [None]
